FAERS Safety Report 6080976-X (Version None)
Quarter: 2009Q1

REPORT INFORMATION
  Report Type: 
  Country: None (occurrence: None)
  Receive Date: 20090217
  Receipt Date: 20090209
  Transmission Date: 20090719
  Serious: No
  Sender: FDA-Public Use
  Company Number: US-B.I. PHARMACEUTICALS,INC./RIDGEFIELD-2009-BP-01605BP

PATIENT
  Age: 63 Year
  Sex: Female

DRUGS (2)
  1. MIRAPEX [Suspect]
     Indication: RESTLESS LEGS SYNDROME
     Dosage: 1MG
     Route: 048
     Dates: start: 20060101
  2. ALENDRONALE [Concomitant]

REACTIONS (1)
  - DEAFNESS [None]
